FAERS Safety Report 17602240 (Version 1)
Quarter: 2020Q1

REPORT INFORMATION
  Report Type: Spontaneous
  Country: US (occurrence: US)
  Receive Date: 20200331
  Receipt Date: 20200331
  Transmission Date: 20200409
  Serious: No
  Sender: FDA-Public Use
  Company Number: US-JNJFOC-20200243967

PATIENT
  Age: 55 Year
  Sex: Male
  Weight: 160 kg

DRUGS (1)
  1. ZYRTEC [Suspect]
     Active Substance: CETIRIZINE HYDROCHLORIDE
     Indication: HYPERSENSITIVITY
     Dosage: I USED 1 OR 2. LAST ADMIN DATE:25/FEB/2020
     Route: 048
     Dates: start: 20200224

REACTIONS (3)
  - Expired product administered [Unknown]
  - Drug hypersensitivity [Recovered/Resolved]
  - Overdose [Unknown]

NARRATIVE: CASE EVENT DATE: 20200224
